FAERS Safety Report 9046496 (Version 2)
Quarter: 2013Q1

REPORT INFORMATION
  Report Type: Spontaneous
  Country: US (occurrence: US)
  Receive Date: 20130204
  Receipt Date: 20130212
  Transmission Date: 20140127
  Serious: No
  Sender: FDA-Public Use
  Company Number: US-009507513-1301USA014298

PATIENT
  Sex: Female

DRUGS (2)
  1. PEGINTRON [Suspect]
     Indication: HEPATITIS C
     Dosage: 0.4 ML, QW
     Route: 058
     Dates: start: 20120319
  2. RIBASPHERE [Suspect]

REACTIONS (2)
  - Rash pruritic [Recovered/Resolved]
  - Pruritus [Recovered/Resolved]
